FAERS Safety Report 18517215 (Version 1)
Quarter: 2020Q4

REPORT INFORMATION
  Report Type: Spontaneous
  Country: US (occurrence: US)
  Receive Date: 20201118
  Receipt Date: 20201118
  Transmission Date: 20210114
  Serious: No
  Sender: FDA-Public Use
  Company Number: US-ASTRAZENECA-2020SF39458

PATIENT
  Sex: Female
  Weight: 112 kg

DRUGS (2)
  1. BYDUREON BCISE [Suspect]
     Active Substance: EXENATIDE
     Indication: DIABETES MELLITUS
     Route: 058
  2. BYDUREON BCISE [Suspect]
     Active Substance: EXENATIDE
     Indication: DIABETES MELLITUS
     Dosage: 4.0MG UNKNOWN
     Route: 058

REACTIONS (11)
  - Device issue [Unknown]
  - Peripheral swelling [Unknown]
  - Weight decreased [Unknown]
  - Blood glucose decreased [Unknown]
  - Bradyphrenia [Unknown]
  - Swelling [Unknown]
  - Injection site haemorrhage [Unknown]
  - Device use issue [Unknown]
  - Injection site erythema [Unknown]
  - Thinking abnormal [Unknown]
  - Skin discolouration [Unknown]
